FAERS Safety Report 23343327 (Version 1)
Quarter: 2023Q4

REPORT INFORMATION
  Report Type: Report from Study
  Country: US (occurrence: US)
  Receive Date: 20231227
  Receipt Date: 20231227
  Transmission Date: 20240110
  Serious: Yes (Other)
  Sender: FDA-Public Use
  Company Number: US-GILEAD-2023-0656258

PATIENT
  Sex: Male

DRUGS (13)
  1. AZTREONAM LYSINE [Suspect]
     Active Substance: AZTREONAM LYSINE
     Indication: Cystic fibrosis
     Dosage: 75 MG, TID (28 DAYS ON, THEN 28 DAYS OFF)
     Route: 055
     Dates: start: 20230214
  2. TOBRAMYCIN [Concomitant]
     Active Substance: TOBRAMYCIN
  3. ASPERCREME PAIN RELIEVING [Concomitant]
     Active Substance: TROLAMINE SALICYLATE
  4. ASPIRIN [Concomitant]
     Active Substance: ASPIRIN
  5. VITAMIN D3 [Concomitant]
     Active Substance: CHOLECALCIFEROL
  6. MYCOPHENOLIC ACID [Concomitant]
     Active Substance: MYCOPHENOLIC ACID
  7. POSACONAZOLE [Concomitant]
     Active Substance: POSACONAZOLE
  8. TACROLIMUS [Concomitant]
     Active Substance: TACROLIMUS
  9. TUMS ULTRA [Concomitant]
     Active Substance: CALCIUM CARBONATE
  10. TYLENOL [Concomitant]
     Active Substance: ACETAMINOPHEN
  11. VALGANCICLOVIR [Concomitant]
     Active Substance: VALGANCICLOVIR
  12. RETINOL [Concomitant]
     Active Substance: RETINOL
  13. KALYDECO [Concomitant]
     Active Substance: IVACAFTOR

REACTIONS (1)
  - Lung transplant [Unknown]
